FAERS Safety Report 7250785-4 (Version None)
Quarter: 2011Q1

REPORT INFORMATION
  Report Type: 
  Country: None (occurrence: None)
  Receive Date: 20110128
  Receipt Date: 20110120
  Transmission Date: 20110831
  Serious: Yes (Life-Threatening, Hospitalization)
  Sender: FDA-Public Use
  Company Number: IT-EISAI INC-E7389-00993-CLI-IT

PATIENT
  Sex: Male
  Weight: 94 kg

DRUGS (18)
  1. PEMETREXED [Suspect]
     Indication: NON-SMALL CELL LUNG CANCER
     Route: 041
     Dates: start: 20100721
  2. RANITIDINE [Concomitant]
     Route: 048
     Dates: start: 20100721, end: 20100721
  3. GRANISETRON HCL [Concomitant]
     Route: 041
     Dates: start: 20100721, end: 20100721
  4. COLONY STIMULATING FACTOR (G-CSF) [Concomitant]
     Indication: NEUTROPENIA
     Route: 058
     Dates: start: 20100819, end: 20100821
  5. KETOPROFEN [Concomitant]
     Indication: PAIN
     Route: 048
     Dates: start: 20100622, end: 20100721
  6. RANITIDINE [Concomitant]
     Indication: PROPHYLAXIS
     Route: 041
     Dates: start: 20100810, end: 20100810
  7. FUROSEMIDE [Concomitant]
     Route: 048
     Dates: start: 20100810
  8. GRANISETRON HCL [Concomitant]
     Indication: ANTIEMETIC SUPPORTIVE CARE
     Route: 041
     Dates: start: 20100810, end: 20100810
  9. FENTANIL [Concomitant]
     Route: 048
     Dates: start: 20100622
  10. PREGABALIN [Concomitant]
     Route: 048
     Dates: start: 20100622
  11. FOLIC ACID [Concomitant]
     Indication: PROPHYLAXIS
     Route: 048
     Dates: start: 20100708
  12. LEVOFLOXACIN [Concomitant]
     Indication: SKIN INFECTION
     Route: 048
     Dates: start: 20100819, end: 20100823
  13. VITAMIN B-12 [Concomitant]
     Indication: PROPHYLAXIS
     Route: 030
     Dates: start: 20100708, end: 20100708
  14. FLUCONAZOLE [Concomitant]
     Indication: INFECTION
     Route: 048
     Dates: start: 20100819, end: 20100823
  15. E7389 (BOLD) [Suspect]
     Indication: NON-SMALL CELL LUNG CANCER
     Route: 041
     Dates: start: 20100721
  16. DEXAMETHASONE [Concomitant]
     Indication: SUPPORTIVE CARE
     Route: 048
     Dates: start: 20100810, end: 20100810
  17. DEXAMETHASONE [Concomitant]
     Route: 048
     Dates: start: 20100513, end: 20100707
  18. OMEPRAZOLE [Concomitant]
     Route: 048
     Dates: start: 20100622, end: 20100707

REACTIONS (4)
  - ANAEMIA [None]
  - LEUKOPENIA [None]
  - NEUTROPENIA [None]
  - CELLULITIS [None]
